FAERS Safety Report 6444341-5 (Version None)
Quarter: 2009Q4

REPORT INFORMATION
  Report Type: 
  Country: None (occurrence: None)
  Receive Date: 20091117
  Receipt Date: 20091117
  Transmission Date: 20100525
  Serious: Yes (Other)
  Sender: FDA-Public Use
  Company Number: None

PATIENT
  Age: 70 Year
  Sex: Female
  Weight: 54.4316 kg

DRUGS (1)
  1. MELOXICAM [Suspect]
     Dosage: SINGLE DOSE
     Dates: start: 20091020, end: 20091020

REACTIONS (1)
  - RETINAL DETACHMENT [None]
